FAERS Safety Report 8381563-0 (Version None)
Quarter: 2012Q2

REPORT INFORMATION
  Report Type: 
  Country: None (occurrence: None)
  Receive Date: 20120523
  Receipt Date: 20120515
  Transmission Date: 20120825
  Serious: Yes (Hospitalization)
  Sender: FDA-Public Use
  Company Number: US-UCBSA-055999

PATIENT
  Age: 7 Year
  Sex: Male
  Weight: 20.7 kg

DRUGS (10)
  1. KEPPRA [Concomitant]
     Indication: CONVULSION
     Dates: start: 20080506, end: 20120202
  2. KEPPRA [Concomitant]
     Dosage: 600 MG IN AM AND MID, 500 MG AT PM
     Dates: start: 20120203, end: 20120203
  3. INTUNIV [Concomitant]
     Indication: IMPULSIVE BEHAVIOUR
     Dosage: ONCE IN THE EVENING
     Route: 048
     Dates: start: 20120315
  4. KEPPRA [Concomitant]
     Dates: start: 20120316, end: 20120319
  5. LACOSAMIDE [Suspect]
     Route: 048
     Dates: start: 20110322, end: 20120426
  6. KEPPRA [Concomitant]
     Dates: start: 20120302, end: 20120315
  7. TRILEPTAL [Concomitant]
     Indication: CONVULSION
     Route: 048
     Dates: start: 20060120
  8. KEPPRA [Concomitant]
     Dates: start: 20120204, end: 20120216
  9. KEPPRA [Concomitant]
     Dates: start: 20120320, end: 20120412
  10. KEPPRA [Concomitant]
     Dates: start: 20120217, end: 20120301

REACTIONS (1)
  - CONVULSION [None]
